FAERS Safety Report 6735319-2 (Version None)
Quarter: 2010Q2

REPORT INFORMATION
  Report Type: 
  Country: None (occurrence: None)
  Receive Date: 20100521
  Receipt Date: 20100512
  Transmission Date: 20101027
  Serious: Yes (Hospitalization)
  Sender: FDA-Public Use
  Company Number: ES-SANOFI-AVENTIS-200711846EU

PATIENT
  Age: 79 Year
  Sex: Male
  Weight: 76 kg

DRUGS (3)
  1. ENOXAPARIN SODIUM [Suspect]
     Dosage: DOSE UNIT: 80 MG
     Dates: start: 20070202, end: 20070205
  2. ENOXAPARIN SODIUM [Suspect]
     Dosage: DOSE UNIT: 60 MG
     Dates: start: 20070205, end: 20070218
  3. INVESTIGATIONAL DRUG [Concomitant]
     Route: 042
     Dates: start: 20061129, end: 20061129

REACTIONS (2)
  - COLITIS ISCHAEMIC [None]
  - GASTROINTESTINAL HAEMORRHAGE [None]
